FAERS Safety Report 9686301 (Version 2)
Quarter: 2013Q4

REPORT INFORMATION
  Report Type: Spontaneous
  Country: KR (occurrence: None)
  Receive Date: 20131108
  Receipt Date: 20131121
  Transmission Date: 20140711
  Serious: Yes (Other)
  Sender: FDA-Public Use
  Company Number: KR-JNJFOC-20131019064

PATIENT
  Age: 69 Year
  Sex: Male
  Weight: 48.5 kg

DRUGS (1)
  1. DACOGEN [Suspect]
     Indication: MYELODYSPLASTIC SYNDROME
     Dates: start: 20110319, end: 20110319

REACTIONS (3)
  - Abscess limb [None]
  - Disseminated intravascular coagulation [None]
  - Sepsis [None]
